FAERS Safety Report 19178831 (Version 1)
Quarter: 2021Q2

REPORT INFORMATION
  Report Type: Spontaneous
  Country: US (occurrence: US)
  Receive Date: 20210421
  Receipt Date: 20210421
  Transmission Date: 20210717
  Serious: Yes (Life-Threatening, Disabling, Other)
  Sender: FDA-Public Use
  Company Number: None

PATIENT
  Age: 35 Year
  Sex: Male
  Weight: 101.25 kg

DRUGS (6)
  1. ZOLOFT [Concomitant]
     Active Substance: SERTRALINE HYDROCHLORIDE
  2. NASACORT [Concomitant]
     Active Substance: TRIAMCINOLONE ACETONIDE
  3. METHOTREXATE. [Suspect]
     Active Substance: METHOTREXATE
     Indication: RHEUMATOID ARTHRITIS
     Dates: start: 20201003, end: 20210109
  4. SIMPONI [Concomitant]
     Active Substance: GOLIMUMAB
  5. FAMOTODINE [Concomitant]
  6. LORATADINE. [Concomitant]
     Active Substance: LORATADINE

REACTIONS (5)
  - Thinking abnormal [None]
  - Anxiety [None]
  - Mental disorder [None]
  - Suicidal ideation [None]
  - Paranoia [None]

NARRATIVE: CASE EVENT DATE: 20201105
